FAERS Safety Report 14943544 (Version 1)
Quarter: 2018Q2

REPORT INFORMATION
  Report Type: Spontaneous
  Country: ES (occurrence: ES)
  Receive Date: 20180528
  Receipt Date: 20180528
  Transmission Date: 20180711
  Serious: Yes (Hospitalization, Other)
  Sender: FDA-Public Use
  Company Number: PHHY2018ES008900

PATIENT
  Age: 57 Year
  Sex: Female

DRUGS (3)
  1. SANDOSTATIN LAR DEPOT [Suspect]
     Active Substance: OCTREOTIDE ACETATE
     Indication: NEUROENDOCRINE TUMOUR
     Dosage: 30 MG, QMO (EVERY 28 DAYS)
     Route: 065
     Dates: start: 200002, end: 200605
  2. INTRON [Concomitant]
     Active Substance: INTERFERON ALFA-2B
     Indication: NEUROENDOCRINE TUMOUR
     Dosage: 3 MILLION IU, 3 TIMES PER WEEK
     Route: 058
     Dates: start: 201005
  3. SANDOSTATIN LAR DEPOT [Suspect]
     Active Substance: OCTREOTIDE ACETATE
     Dosage: 30 MG, QMO (EVERY 28 DAYS)
     Route: 065
     Dates: start: 200705

REACTIONS (6)
  - Arthritis [Unknown]
  - Porcelain gallbladder [Unknown]
  - Ischaemic stroke [Unknown]
  - Malignant neoplasm progression [Unknown]
  - Anaemia [Unknown]
  - Hepatic lesion [Unknown]

NARRATIVE: CASE EVENT DATE: 200002
